FAERS Safety Report 8070006-2 (Version None)
Quarter: 2012Q1

REPORT INFORMATION
  Report Type: 
  Country: None (occurrence: None)
  Receive Date: 20120125
  Receipt Date: 20120119
  Transmission Date: 20120608
  Serious: No
  Sender: FDA-Public Use
  Company Number: US-JNJFOC-20120109252

PATIENT
  Sex: Female
  Weight: 76.2 kg

DRUGS (12)
  1. FENTANYL-100 [Suspect]
     Indication: SPINAL OSTEOARTHRITIS
     Dosage: 2 X 50 UG/HR PATCHES
     Route: 062
     Dates: start: 20120111
  2. FENTANYL-100 [Suspect]
     Route: 062
     Dates: start: 20120104, end: 20120110
  3. FENTANYL-100 [Suspect]
     Route: 062
     Dates: start: 20120104, end: 20120110
  4. FENTANYL-100 [Suspect]
     Indication: INTERVERTEBRAL DISC PROTRUSION
     Dosage: 2 X 50 UG/HR PATCHES
     Route: 062
     Dates: start: 20120111
  5. FENTANYL-100 [Suspect]
     Route: 062
     Dates: start: 20120104, end: 20120110
  6. FENTANYL-100 [Suspect]
     Indication: RHEUMATOID ARTHRITIS
     Dosage: 2 X 50 UG/HR PATCHES
     Route: 062
     Dates: start: 20120111
  7. FENTANYL-100 [Suspect]
     Indication: NEUROPATHY PERIPHERAL
     Dosage: 2 X 50 UG/HR PATCHES
     Route: 062
     Dates: start: 20120111
  8. FENTANYL-100 [Suspect]
     Route: 062
     Dates: start: 20120104, end: 20120110
  9. FENTANYL-100 [Suspect]
     Indication: OSTEOARTHRITIS
     Dosage: 2 X 50 UG/HR PATCHES
     Route: 062
     Dates: start: 20120111
  10. FENTANYL-100 [Suspect]
     Route: 062
     Dates: start: 20120104, end: 20120110
  11. FENTANYL-100 [Suspect]
     Route: 062
     Dates: start: 20120104, end: 20120110
  12. FENTANYL-100 [Suspect]
     Indication: FIBROMYALGIA
     Dosage: 2 X 50 UG/HR PATCHES
     Route: 062
     Dates: start: 20120111

REACTIONS (5)
  - DRUG ADMINISTERED AT INAPPROPRIATE SITE [None]
  - PRODUCT QUALITY ISSUE [None]
  - MUSCLE SPASMS [None]
  - PAIN [None]
  - WRONG TECHNIQUE IN DRUG USAGE PROCESS [None]
